FAERS Safety Report 4457416-7 (Version None)
Quarter: 2004Q3

REPORT INFORMATION
  Report Type: 
  Country: None (occurrence: None)
  Receive Date: 20040922
  Receipt Date: 20040908
  Transmission Date: 20050211
  Serious: Yes (Hospitalization, Other)
  Sender: FDA-Public Use
  Company Number: USA040977660

PATIENT
  Age: 57 Year
  Sex: Female
  Weight: 84 kg

DRUGS (4)
  1. HUMULIN 70/30 [Suspect]
     Indication: DIABETES MELLITUS
     Dosage: 90 U DAY
     Dates: start: 19940101
  2. GLUCOPHAGE [Concomitant]
  3. FUROSEMIDE [Concomitant]
  4. DIGITALIS [Concomitant]

REACTIONS (16)
  - ARRHYTHMIA [None]
  - ATRIAL FIBRILLATION [None]
  - BLOOD GLUCOSE FLUCTUATION [None]
  - BLOOD GLUCOSE INCREASED [None]
  - CEREBROVASCULAR ACCIDENT [None]
  - DIABETES MELLITUS INADEQUATE CONTROL [None]
  - DIARRHOEA [None]
  - FLUID RETENTION [None]
  - HEART VALVE INSUFFICIENCY [None]
  - JOINT SWELLING [None]
  - MARKEDLY REDUCED DIETARY INTAKE [None]
  - OEDEMA PERIPHERAL [None]
  - OPHTHALMOPLEGIA [None]
  - PHARMACEUTICAL PRODUCT COMPLAINT [None]
  - TRIGEMINAL NERVE DISORDER [None]
  - WEIGHT INCREASED [None]
